FAERS Safety Report 8193719-0 (Version None)
Quarter: 2012Q1

REPORT INFORMATION
  Report Type: 
  Country: None (occurrence: None)
  Receive Date: 20120308
  Receipt Date: 20120227
  Transmission Date: 20120608
  Serious: Yes (Death, Other)
  Sender: FDA-Public Use
  Company Number: US-BAXTER-2012BH005563

PATIENT
  Sex: Male

DRUGS (1)
  1. DIANEAL [Suspect]
     Indication: PERITONEAL DIALYSIS
     Route: 033
     Dates: end: 20120223

REACTIONS (5)
  - RENAL FAILURE [None]
  - SEPSIS [None]
  - REFUSAL OF TREATMENT BY PATIENT [None]
  - PERITONITIS BACTERIAL [None]
  - ENTEROCOCCAL INFECTION [None]
